FAERS Safety Report 19823880 (Version 1)
Quarter: 2021Q3

REPORT INFORMATION
  Report Type: Spontaneous
  Country: HN (occurrence: HN)
  Receive Date: 20210913
  Receipt Date: 20210913
  Transmission Date: 20211014
  Serious: Yes (Other)
  Sender: FDA-Public Use
  Company Number: HN-EXELTIS PHARMACEUTICAL HOLDING, S.L.-2108HN00950

PATIENT
  Age: 22 Year
  Sex: Female

DRUGS (1)
  1. SLINDA [Suspect]
     Active Substance: DROSPIRENONE
     Indication: PRODUCT USED FOR UNKNOWN INDICATION
     Dosage: 4 MILLIGRAM, QD
     Dates: start: 202101, end: 202104

REACTIONS (3)
  - Abortion [Unknown]
  - Pregnancy [Unknown]
  - Product dose omission in error [Unknown]
